FAERS Safety Report 6328680-4 (Version None)
Quarter: 2009Q3

REPORT INFORMATION
  Report Type: 
  Country: None (occurrence: None)
  Receive Date: 20090826
  Receipt Date: 20090819
  Transmission Date: 20100115
  Serious: Yes (Other)
  Sender: FDA-Public Use
  Company Number: PHEH2009US07669

PATIENT
  Sex: Female
  Weight: 81.633 kg

DRUGS (1)
  1. MIACALCIN [Suspect]
     Indication: BONE DISORDER
     Dosage: UNK
     Dates: start: 20050801

REACTIONS (3)
  - BONE OPERATION [None]
  - DRUG INEFFECTIVE [None]
  - OSTEOPENIA [None]
